FAERS Safety Report 16593889 (Version 1)
Quarter: 2019Q3

REPORT INFORMATION
  Report Type: Other
  Country: US (occurrence: US)
  Receive Date: 20190718
  Receipt Date: 20190718
  Transmission Date: 20191004
  Serious: No
  Sender: FDA-Public Use
  Company Number: US-SWEDISH ORPHAN BIOVITRUM-2018US1505

PATIENT
  Sex: Male

DRUGS (5)
  1. PLAVIX [Concomitant]
     Active Substance: CLOPIDOGREL BISULFATE
  2. METOPROLOL. [Concomitant]
     Active Substance: METOPROLOL
  3. KINERET [Suspect]
     Active Substance: ANAKINRA
     Route: 058
     Dates: start: 20181023
  4. PRALUENT [Concomitant]
     Active Substance: ALIROCUMAB
  5. AVAPRO [Concomitant]
     Active Substance: IRBESARTAN

REACTIONS (2)
  - Injection site pain [Unknown]
  - Injection site urticaria [Recovering/Resolving]
